FAERS Safety Report 12221380 (Version 2)
Quarter: 2016Q2

REPORT INFORMATION
  Report Type: Spontaneous
  Country: US (occurrence: US)
  Receive Date: 20160330
  Receipt Date: 20160405
  Transmission Date: 20160815
  Serious: No
  Sender: FDA-Public Use
  Company Number: US-GLAXOSMITHKLINE-US2016043261

PATIENT
  Age: 71 Year
  Sex: Male

DRUGS (1)
  1. FLONASE [Suspect]
     Active Substance: FLUTICASONE PROPIONATE
     Indication: HYPERSENSITIVITY
     Dosage: UNK. 5 TIMES A WEEK

REACTIONS (4)
  - Glossodynia [Not Recovered/Not Resolved]
  - Rash [Recovering/Resolving]
  - Hypoaesthesia oral [Not Recovered/Not Resolved]
  - Glossitis [Not Recovered/Not Resolved]
